FAERS Safety Report 5547382-5 (Version None)
Quarter: 2007Q4

REPORT INFORMATION
  Report Type: 
  Country: None (occurrence: None)
  Receive Date: 20071128
  Receipt Date: 20061101
  Transmission Date: 20080405
  Serious: Yes (Other)
  Sender: FDA-Public Use
  Company Number: 2006134575

PATIENT
  Age: 74 Year
  Sex: Male
  Weight: 78.4723 kg

DRUGS (11)
  1. LIPITOR [Suspect]
     Indication: BLOOD CHOLESTEROL INCREASED
     Dosage: 40 MG (40 MG, 1 IN 1 D); COUPLE OF YEARS
  2. PROTONIX [Concomitant]
  3. SYNTHROID [Concomitant]
  4. GLIPIZIDE [Concomitant]
  5. COREG [Concomitant]
  6. PLAVIX [Concomitant]
  7. FUROSEMIDE [Concomitant]
  8. COLCHICUM JTL LIQ [Concomitant]
  9. LISINOPRIL [Concomitant]
  10. POTASSIUM CHLORIDE [Concomitant]
  11. METOLAZONE [Concomitant]

REACTIONS (1)
  - ATRIAL FIBRILLATION [None]
